FAERS Safety Report 12206956 (Version 3)
Quarter: 2018Q2

REPORT INFORMATION
  Report Type: Spontaneous
  Country: US (occurrence: US)
  Receive Date: 20160324
  Receipt Date: 20180615
  Transmission Date: 20180711
  Serious: Yes (Other)
  Sender: FDA-Public Use
  Company Number: US-BRISTOL-MYERS SQUIBB COMPANY-BMS-2016-019406

PATIENT
  Sex: Male
  Weight: 117.91 kg

DRUGS (1)
  1. ELIQUIS [Suspect]
     Active Substance: APIXABAN
     Indication: CEREBROVASCULAR ACCIDENT PROPHYLAXIS
     Dosage: 5 MG, BID
     Route: 048
     Dates: start: 201702

REACTIONS (9)
  - Rash macular [Unknown]
  - Contusion [Unknown]
  - Syncope [Unknown]
  - Haemorrhage [Unknown]
  - Blood pressure abnormal [Unknown]
  - Intentional product misuse [Unknown]
  - Dizziness [Unknown]
  - Diarrhoea [Unknown]
  - Blood glucose increased [Unknown]
